FAERS Safety Report 23503802 (Version 1)
Quarter: 2024Q1

REPORT INFORMATION
  Report Type: Spontaneous
  Country: US (occurrence: US)
  Receive Date: 20240209
  Receipt Date: 20240209
  Transmission Date: 20240410
  Serious: Yes (Death, Other)
  Sender: FDA-Public Use
  Company Number: US-BRISTOL-MYERS SQUIBB COMPANY-2024-020424

PATIENT
  Age: 73 Year
  Sex: Female

DRUGS (2)
  1. REVLIMID [Suspect]
     Active Substance: LENALIDOMIDE
     Indication: Plasma cell myeloma
     Route: 048
     Dates: start: 202306
  2. NIVESTYM [FILGRASTIM] [Concomitant]
     Indication: Product used for unknown indication
     Dosage: NIVESTYM PFS (10X0.5ML)

REACTIONS (1)
  - Death [Fatal]

NARRATIVE: CASE EVENT DATE: 20240122
